FAERS Safety Report 4930244-1 (Version None)
Quarter: 2006Q1

REPORT INFORMATION
  Report Type: 
  Country: None (occurrence: None)
  Receive Date: 20060224
  Receipt Date: 20060209
  Transmission Date: 20060701
  Serious: Yes (Other)
  Sender: FDA-Public Use
  Company Number: 2005BI020670

PATIENT
  Age: 64 Year
  Sex: Female
  Weight: 121.1104 kg

DRUGS (17)
  1. AVONEX [Suspect]
     Indication: MULTIPLE SCLEROSIS
     Dosage: 30 UG; QW; IM
     Route: 030
     Dates: start: 19990922
  2. AVONEX [Suspect]
     Indication: MULTIPLE SCLEROSIS
     Dosage: 30 UG; QW; IM
     Route: 030
     Dates: end: 20051201
  3. SYNTHROID [Concomitant]
  4. AMARYL [Concomitant]
  5. POTASSIUM CHLORIDE [Concomitant]
  6. M.V.I. [Concomitant]
  7. CYCLOBENZAPRINE HCL [Concomitant]
  8. DESOXIMETASONE [Concomitant]
  9. ACLOVATE [Concomitant]
  10. CALCIUM GLUCONATE [Concomitant]
  11. LASIX [Concomitant]
  12. NEURONTIN [Concomitant]
  13. ZOCOR [Concomitant]
  14. PREDNISONE [Concomitant]
  15. ACIPHEX [Concomitant]
  16. BIAXIN [Concomitant]
  17. CRESTOR [Concomitant]

REACTIONS (3)
  - HEPATIC FIBROSIS [None]
  - HEPATIC STEATOSIS [None]
  - OBESITY [None]
